FAERS Safety Report 23478714 (Version 1)
Quarter: 2024Q1

REPORT INFORMATION
  Report Type: Spontaneous
  Country: US (occurrence: US)
  Receive Date: 20240205
  Receipt Date: 20240205
  Transmission Date: 20240410
  Serious: Yes (Other)
  Sender: FDA-Public Use
  Company Number: US-HALEON-USCH2024005138

PATIENT

DRUGS (1)
  1. ROBITUSSIN HONEY SEVERE COUGH, FLU PLUS SORE THROAT [Suspect]
     Active Substance: ACETAMINOPHEN\DEXTROMETHORPHAN HYDROBROMIDE
     Indication: Nasopharyngitis
     Dosage: UNK
     Dates: start: 20231127

REACTIONS (12)
  - General physical health deterioration [Unknown]
  - Sinus pain [Unknown]
  - Condition aggravated [Unknown]
  - Headache [Unknown]
  - Nasal discharge discolouration [Unknown]
  - Fatigue [Unknown]
  - Acute sinusitis [Unknown]
  - Nasal congestion [Not Recovered/Not Resolved]
  - Drainage [Not Recovered/Not Resolved]
  - Facial pain [Not Recovered/Not Resolved]
  - Drug ineffective [Unknown]
  - Recalled product administered [Unknown]

NARRATIVE: CASE EVENT DATE: 20230101
